FAERS Safety Report 24249115 (Version 1)
Quarter: 2024Q3

REPORT INFORMATION
  Report Type: Report from Study
  Country: CA (occurrence: CA)
  Receive Date: 20240826
  Receipt Date: 20240826
  Transmission Date: 20241016
  Serious: Yes (Other)
  Sender: NOVARTIS
  Company Number: CA-002147023-NVSC2024CA171709

PATIENT
  Age: 51 Year
  Sex: Male
  Weight: 83.3 kg

DRUGS (1)
  1. LEQVIO [Suspect]
     Active Substance: INCLISIRAN SODIUM
     Indication: Arteriosclerosis
     Dosage: 0, 3 AND 9 MONTHS THEN Q6 MONTHS
     Route: 058
     Dates: start: 20240506

REACTIONS (1)
  - Dizziness [Not Recovered/Not Resolved]
